FAERS Safety Report 8017289-2 (Version None)
Quarter: 2012Q1

REPORT INFORMATION
  Report Type: 
  Country: None (occurrence: None)
  Receive Date: 20120102
  Receipt Date: 20111228
  Transmission Date: 20120608
  Serious: Yes (Death)
  Sender: FDA-Public Use
  Company Number: PHHY2011ES112598

PATIENT
  Age: 70 Year
  Sex: Female

DRUGS (4)
  1. RASILEZ HCT [Suspect]
     Indication: HYPERTENSION
     Dosage: UNK
     Route: 048
  2. METFORMIN HYDROCHLORIDE [Suspect]
     Indication: TYPE 2 DIABETES MELLITUS
     Dosage: UNK
     Route: 048
  3. ACETAMINOPHEN [Concomitant]
     Indication: MUSCULOSKELETAL PAIN
     Dosage: UNK
  4. SIMVASTATIN [Concomitant]
     Indication: BLOOD CHOLESTEROL INCREASED
     Dosage: UNK

REACTIONS (1)
  - HAEMORRHAGIC STROKE [None]
